FAERS Safety Report 5338524-5 (Version None)
Quarter: 2007Q2

REPORT INFORMATION
  Report Type: 
  Country: None (occurrence: None)
  Receive Date: 20070405
  Receipt Date: 20061106
  Transmission Date: 20071010
  Serious: No
  Sender: FDA-Public Use
  Company Number: US200611001194

PATIENT
  Age: 74 Year
  Sex: Female

DRUGS (2)
  1. CYMBALTA [Suspect]
     Indication: DEPRESSION
     Dosage: 60 MG ORAL
     Route: 048
     Dates: start: 20060101, end: 20061001
  2. GABAPENTIN [Concomitant]

REACTIONS (6)
  - CRYING [None]
  - DEPRESSION [None]
  - DRY MOUTH [None]
  - FEELING ABNORMAL [None]
  - HYPERHIDROSIS [None]
  - WEIGHT INCREASED [None]
